FAERS Safety Report 19795256 (Version 1)
Quarter: 2021Q3

REPORT INFORMATION
  Report Type: Spontaneous
  Country: US (occurrence: US)
  Receive Date: 20210906
  Receipt Date: 20210906
  Transmission Date: 20211014
  Serious: No
  Sender: FDA-Public Use
  Company Number: US-009507513-2108USA006317

PATIENT

DRUGS (1)
  1. KEYTRUDA [Suspect]
     Active Substance: PEMBROLIZUMAB

REACTIONS (7)
  - Fatigue [Unknown]
  - Dyspnoea [Unknown]
  - Hair growth abnormal [Unknown]
  - Cardiovascular disorder [Unknown]
  - Nail growth abnormal [Unknown]
  - Coagulopathy [Unknown]
  - Blood glucose abnormal [Unknown]
